FAERS Safety Report 19866122 (Version 3)
Quarter: 2021Q3

REPORT INFORMATION
  Report Type: Report from Study
  Country: CN (occurrence: CN)
  Receive Date: 20210921
  Receipt Date: 20210927
  Transmission Date: 20211014
  Serious: Yes (Other)
  Sender: FDA-Public Use
  Company Number: CN-BAYER-2021-211777

PATIENT

DRUGS (7)
  1. PYRAZINAMIDE. [Concomitant]
     Active Substance: PYRAZINAMIDE
     Dosage: 1.0 G, BID
  2. AMIKACIN SULFATE. [Concomitant]
     Active Substance: AMIKACIN SULFATE
     Dosage: 0.6 G, QD
     Route: 041
  3. PROTIONAMIDE [Concomitant]
     Active Substance: PROTIONAMIDE
     Dosage: 250 MG, TID
  4. RIFAPENTINE [Concomitant]
     Active Substance: RIFAPENTINE
     Dosage: 0.3 G, BID
  5. MOXIFLOXACIN ORAL [Suspect]
     Active Substance: MOXIFLOXACIN
     Indication: TUBERCULOSIS
     Dosage: 0.4 G, QD
     Route: 048
  6. PASINIAZIDE [Concomitant]
     Active Substance: PASINIAZID
     Dosage: 10?20MG/KG
     Route: 048
  7. SODIUM AMINOSALICYLATE [Concomitant]
     Active Substance: AMINOSALICYLATE SODIUM
     Dosage: 0.8 G
     Route: 041

REACTIONS (2)
  - Renal injury [None]
  - Liver injury [None]
